FAERS Safety Report 14134279 (Version 2)
Quarter: 2018Q2

REPORT INFORMATION
  Report Type: Spontaneous
  Country: DE (occurrence: DE)
  Receive Date: 20171027
  Receipt Date: 20180522
  Transmission Date: 20180711
  Serious: Yes (Hospitalization)
  Sender: FDA-Public Use
  Company Number: DE-ACCORD-060240

PATIENT
  Sex: Female

DRUGS (7)
  1. VENLAFAXINE/VENLAFAXINE HYDROCHLORIDE [Concomitant]
     Indication: MAJOR DEPRESSION
     Dates: start: 2006
  2. MELPERONE/MELPERONE HYDROCHLORIDE [Concomitant]
     Indication: MAJOR DEPRESSION
     Dosage: 50 TO 100 MG
  3. LITHIUM. [Concomitant]
     Active Substance: LITHIUM
     Indication: MAJOR DEPRESSION
     Dates: start: 2006
  4. BUPROPION/BUPROPION HYDROCHLORIDE [Suspect]
     Active Substance: BUPROPION HYDROCHLORIDE
     Indication: MAJOR DEPRESSION
     Dosage: 150 TO 300 MG
  5. RAMIPRIL. [Concomitant]
     Active Substance: RAMIPRIL
     Indication: HYPERTENSION
  6. DOXEPIN [Suspect]
     Active Substance: DOXEPIN
     Indication: MAJOR DEPRESSION
     Dosage: ONCE OR TWICE A WEEK
     Dates: start: 2015, end: 2016
  7. SERTRALINE [Suspect]
     Active Substance: SERTRALINE HYDROCHLORIDE
     Indication: MAJOR DEPRESSION

REACTIONS (2)
  - Condition aggravated [Recovering/Resolving]
  - Sleep-related eating disorder [Recovering/Resolving]
